FAERS Safety Report 17065408 (Version 1)
Quarter: 2019Q4

REPORT INFORMATION
  Report Type: Spontaneous
  Country: US (occurrence: US)
  Receive Date: 20191122
  Receipt Date: 20191122
  Transmission Date: 20200122
  Serious: Yes (Other)
  Sender: FDA-Public Use
  Company Number: US-GLAXOSMITHKLINE-US2019AMR207526

PATIENT
  Sex: Male

DRUGS (1)
  1. TRELEGY ELLIPTA [Suspect]
     Active Substance: FLUTICASONE FUROATE\UMECLIDINIUM BROMIDE\VILANTEROL TRIFENATATE
     Indication: PRODUCT USED FOR UNKNOWN INDICATION
     Dosage: 100 MCG + 62.5 MCG + 25 MCG
     Route: 065

REACTIONS (8)
  - Metastases to lymph nodes [Unknown]
  - Diverticulum intestinal [Unknown]
  - Osteopenia [Unknown]
  - Oesophageal carcinoma [Unknown]
  - Emphysema [Unknown]
  - Pneumonitis [Unknown]
  - Arteriosclerosis [Unknown]
  - Hepatic cyst [Unknown]
